FAERS Safety Report 22020106 (Version 1)
Quarter: 2023Q1

REPORT INFORMATION
  Report Type: Spontaneous
  Country: JP (occurrence: JP)
  Receive Date: 20230222
  Receipt Date: 20230222
  Transmission Date: 20230418
  Serious: Yes (Hospitalization, Other)
  Sender: FDA-Public Use
  Company Number: JP-PFIZER INC-PV202300033267

PATIENT
  Age: 71 Year
  Sex: Female

DRUGS (1)
  1. LEVOFLOXACIN [Suspect]
     Active Substance: LEVOFLOXACIN
     Indication: Nasopharyngitis
     Dosage: UNK

REACTIONS (2)
  - Haemolysis [Unknown]
  - Autoimmune haemolytic anaemia [Unknown]
